FAERS Safety Report 21191532 (Version 1)
Quarter: 2022Q3

REPORT INFORMATION
  Report Type: Spontaneous
  Country: US (occurrence: None)
  Receive Date: 20220809
  Receipt Date: 20220809
  Transmission Date: 20221026
  Serious: Yes (Other)
  Sender: FDA-Public Use
  Company Number: None

PATIENT
  Sex: Male

DRUGS (4)
  1. ABIRATERONE ACETATE [Suspect]
     Active Substance: ABIRATERONE ACETATE
     Indication: Prostate cancer
     Dosage: FREQUENCY : DAILY;?TAKE 4 TABLETS BY MOUTH ONCE DAILY?
     Route: 048
     Dates: start: 20210604
  2. CASODEX TAB [Concomitant]
  3. PREDNISONE [Concomitant]
     Active Substance: PREDNISONE
  4. ZYTIGA [Concomitant]
     Active Substance: ABIRATERONE ACETATE

REACTIONS (2)
  - Therapy interrupted [None]
  - Surgery [None]
